FAERS Safety Report 8904637 (Version 2)
Quarter: 2012Q4

REPORT INFORMATION
  Report Type: 
  Country: CN (occurrence: CN)
  Receive Date: 20121113
  Receipt Date: 20121129
  Transmission Date: 20130627
  Serious: Yes (Hospitalization)
  Sender: FDA-Public Use
  Company Number: CN-ABBOTT-12P-035-1007340-00

PATIENT
  Age: 41 Year
  Sex: Male

DRUGS (2)
  1. VALPROATE SODIUM [Suspect]
     Indication: CONVULSION PROPHYLAXIS
     Dosage: 0.6 grams daily
     Route: 048
  2. VALPROATE SODIUM [Suspect]

REACTIONS (5)
  - Hypofibrinogenaemia [Recovered/Resolved]
  - Activated partial thromboplastin time prolonged [Recovered/Resolved]
  - Prothrombin time prolonged [Recovered/Resolved]
  - Thrombin time prolonged [Recovered/Resolved]
  - Haemorrhage intracranial [Recovered/Resolved]
